FAERS Safety Report 5866530-0 (Version None)
Quarter: 2008Q3

REPORT INFORMATION
  Report Type: 
  Country: None (occurrence: None)
  Receive Date: 20080902
  Receipt Date: 20080902
  Transmission Date: 20090109
  Serious: Yes (Hospitalization)
  Sender: FDA-Public Use
  Company Number: PHEH1995US01190

PATIENT
  Sex: Female
  Weight: 67 kg

DRUGS (6)
  1. NEORAL [Suspect]
     Route: 048
     Dates: start: 19950730
  2. PREDNISONE TAB [Concomitant]
  3. IMURAN [Concomitant]
  4. ACTIGALL [Concomitant]
  5. PRILOSEC [Concomitant]
  6. PENTAMIDINE (PENTAMIDINE) [Concomitant]

REACTIONS (4)
  - CYTOMEGALOVIRUS INFECTION [None]
  - DYSPNOEA [None]
  - FATIGUE [None]
  - PYREXIA [None]
